FAERS Safety Report 5450353-0 (Version None)
Quarter: 2007Q3

REPORT INFORMATION
  Report Type: 
  Country: None (occurrence: None)
  Receive Date: 20070912
  Receipt Date: 20070907
  Transmission Date: 20080115
  Serious: Yes (Death, Other)
  Sender: FDA-Public Use
  Company Number: HQWYE665102AUG05

PATIENT
  Sex: Male
  Weight: 92.5 kg

DRUGS (10)
  1. SIROLIMUS [Suspect]
     Indication: PROPHYLAXIS AGAINST TRANSPLANT REJECTION
     Route: 048
     Dates: start: 20030314, end: 20060517
  2. HYDROXYZINE [Concomitant]
     Dosage: UNSPECIFIED
     Dates: start: 20020522
  3. ASCORBIC ACID/ERGOCALCIFEROL/NICOTINAMIDE/RETINOL/RIBOFLAVIN/THIAMINE [Concomitant]
     Dosage: UNSPECIFIED
     Dates: start: 20020601
  4. HYDROCHLOROTHIAZIDE [Concomitant]
     Indication: HYPERTENSION
     Dates: start: 20040306
  5. ASPIRIN [Concomitant]
     Dosage: UNSPECIFIED
     Dates: start: 20020515
  6. AUGMENTIN '125' [Concomitant]
     Dosage: UNSPECIFIED
     Dates: start: 20050307
  7. PREDNISONE [Concomitant]
     Indication: IMMUNOSUPPRESSANT DRUG THERAPY
     Dates: start: 20020626
  8. INDERAL [Concomitant]
     Indication: HYPERTENSION
     Dates: start: 20010301
  9. ACTIGALL [Concomitant]
     Dosage: UNSPECIFIED
     Dates: start: 20020516
  10. BACTRIM [Concomitant]
     Dosage: UNSPECIFIED
     Dates: start: 20020515

REACTIONS (1)
  - METASTATIC MALIGNANT MELANOMA [None]
